FAERS Safety Report 14202274 (Version 2)
Quarter: 2017Q4

REPORT INFORMATION
  Report Type: Spontaneous
  Country: US (occurrence: US)
  Receive Date: 20171117
  Receipt Date: 20171206
  Transmission Date: 20180321
  Serious: Yes (Hospitalization)
  Sender: FDA-Public Use
  Company Number: US-ACTELION-A-NJ2017-162577

PATIENT
  Age: 68 Year
  Sex: Female
  Weight: 77.98 kg

DRUGS (3)
  1. FLOLAN [Concomitant]
     Active Substance: EPOPROSTENOL SODIUM
  2. WARFARIN [Concomitant]
     Active Substance: WARFARIN
  3. TRACLEER [Suspect]
     Active Substance: BOSENTAN
     Indication: PULMONARY HYPERTENSION
     Dosage: 125 MG, BID
     Route: 048

REACTIONS (5)
  - White blood cell count increased [Unknown]
  - Systemic lupus erythematosus [Unknown]
  - Oxygen consumption increased [Unknown]
  - Pneumonia [Unknown]
  - Dyspnoea [Unknown]
